FAERS Safety Report 4570584-1 (Version None)
Quarter: 2005Q1

REPORT INFORMATION
  Report Type: 
  Country: None (occurrence: None)
  Receive Date: 20050204
  Receipt Date: 20041025
  Transmission Date: 20050727
  Serious: Yes (Other)
  Sender: FDA-Public Use
  Company Number: US-GLAXOSMITHKLINE-A0532357A

PATIENT
  Age: 77 Year
  Sex: Female

DRUGS (1)
  1. RELAFEN [Suspect]
     Indication: ARTHRALGIA
     Route: 065

REACTIONS (3)
  - DEAFNESS [None]
  - GINGIVAL ABSCESS [None]
  - TREMOR [None]
